FAERS Safety Report 8444051-9 (Version None)
Quarter: 2012Q2

REPORT INFORMATION
  Report Type: 
  Country: None (occurrence: None)
  Receive Date: 20120323
  Receipt Date: 20111004
  Transmission Date: 20120825
  Serious: Yes (Other)
  Sender: FDA-Public Use
  Company Number: 163-21880-11070747

PATIENT
  Age: 69 Year
  Sex: Male
  Weight: 78.563 kg

DRUGS (18)
  1. ZOMETA [Concomitant]
  2. LEVOTHYROXINE SODIUM [Concomitant]
  3. NORVASC [Concomitant]
  4. ZOCOR [Concomitant]
  5. GABAPENTIN [Concomitant]
  6. REGLAN [Concomitant]
  7. CENTRUM SILVER (CENTRUM SILVER) [Concomitant]
  8. PERCOCET [Concomitant]
  9. XANAX [Concomitant]
  10. VICODIN [Concomitant]
  11. ASPIRIN [Concomitant]
  12. LYRICA [Concomitant]
  13. REVLIMID [Suspect]
     Indication: MULTIPLE MYELOMA
     Dosage: SEE IMAGE
     Route: 048
     Dates: start: 20110721
  14. REVLIMID [Suspect]
     Indication: MULTIPLE MYELOMA
     Dosage: SEE IMAGE
     Route: 048
     Dates: start: 20101223, end: 20110121
  15. REVLIMID [Suspect]
     Indication: MULTIPLE MYELOMA
     Dosage: SEE IMAGE
     Route: 048
     Dates: start: 20100101
  16. REVLIMID [Suspect]
     Indication: MULTIPLE MYELOMA
     Dosage: SEE IMAGE
     Route: 048
     Dates: start: 20090715, end: 20110707
  17. REVLIMID [Suspect]
     Indication: MULTIPLE MYELOMA
     Dosage: SEE IMAGE
     Route: 048
     Dates: start: 20110509, end: 20110701
  18. REVLIMID [Suspect]
     Indication: MULTIPLE MYELOMA
     Dosage: SEE IMAGE
     Route: 048
     Dates: start: 20110121, end: 20110101

REACTIONS (3)
  - NEUTROPHIL COUNT DECREASED [None]
  - NEUROPATHY PERIPHERAL [None]
  - PANCYTOPENIA [None]
